FAERS Safety Report 24158409 (Version 1)
Quarter: 2024Q3

REPORT INFORMATION
  Report Type: Spontaneous
  Country: FR (occurrence: FR)
  Receive Date: 20240731
  Receipt Date: 20240731
  Transmission Date: 20241017
  Serious: Yes (Disabling)
  Sender: MYLAN
  Company Number: FR-MYLANLABS-2024M1070086

PATIENT
  Age: 34 Year
  Sex: Male

DRUGS (3)
  1. GABAPENTIN [Suspect]
     Active Substance: GABAPENTIN
     Indication: Neuralgia
     Dosage: 3 DOSAGE FORM, TID
     Route: 065
     Dates: start: 20240510
  2. GABAPENTIN [Suspect]
     Active Substance: GABAPENTIN
     Indication: Pudendal canal syndrome
     Dosage: 2 DOSAGE FORM, BID
     Route: 065
  3. GABAPENTIN [Suspect]
     Active Substance: GABAPENTIN
     Dosage: 1 DOSAGE FORM, QD
     Route: 065
     Dates: end: 20240721

REACTIONS (7)
  - Dysstasia [Recovering/Resolving]
  - Gait disturbance [Recovering/Resolving]
  - Sunburn [Unknown]
  - Muscle contractions involuntary [Unknown]
  - Myalgia [Unknown]
  - Arthralgia [Unknown]
  - Withdrawal syndrome [Unknown]

NARRATIVE: CASE EVENT DATE: 20240601
